FAERS Safety Report 23528600 (Version 4)
Quarter: 2024Q2

REPORT INFORMATION
  Report Type: Spontaneous
  Country: US (occurrence: US)
  Receive Date: 20240215
  Receipt Date: 20240618
  Transmission Date: 20240716
  Serious: Yes (Death, Other)
  Sender: FDA-Public Use
  Company Number: US-GILEAD-2024-0661775

PATIENT
  Age: 59 Year
  Sex: Female

DRUGS (1)
  1. YESCARTA [Suspect]
     Active Substance: AXICABTAGENE CILOLEUCEL
     Indication: B-cell lymphoma
     Dosage: UNK, 3L
     Route: 065
     Dates: start: 20220513, end: 20220513

REACTIONS (5)
  - Disease progression [Fatal]
  - T-cell lymphoma [Unknown]
  - Haemophagocytic lymphohistiocytosis [Unknown]
  - Cytopenia [Unknown]
  - Epstein-Barr virus infection [Unknown]

NARRATIVE: CASE EVENT DATE: 20220707
